FAERS Safety Report 5984201-7 (Version None)
Quarter: 2008Q4

REPORT INFORMATION
  Report Type: 
  Country: None (occurrence: None)
  Receive Date: 20081205
  Receipt Date: 20081205
  Transmission Date: 20090506
  Serious: Yes (Death)
  Sender: FDA-Public Use
  Company Number: None

PATIENT
  Age: 70 Year
  Sex: Female
  Weight: 74.8435 kg

DRUGS (3)
  1. BYETTA [Suspect]
     Indication: DIABETES MELLITUS
     Dosage: 5-MCG 2-TIME DAILY INJECTION ; 10 MCG 3 TIMES DAY INJECTION
     Dates: start: 20070701, end: 20080424
  2. BYETTA [Suspect]
     Indication: DIABETES MELLITUS
     Dosage: 5-MCG 2-TIME DAILY INJECTION ; 10 MCG 3 TIMES DAY INJECTION
     Dates: start: 20070715
  3. BYETTA [Suspect]
     Indication: DIABETES MELLITUS
     Dosage: 5-MCG 2-TIME DAILY INJECTION ; 10 MCG 3 TIMES DAY INJECTION
     Dates: start: 20071001

REACTIONS (2)
  - MEDICATION ERROR [None]
  - PANCREATIC CARCINOMA [None]
